FAERS Safety Report 4432683-4 (Version None)
Quarter: 2004Q3

REPORT INFORMATION
  Report Type: 
  Country: None (occurrence: None)
  Receive Date: 20040820
  Receipt Date: 20040802
  Transmission Date: 20050211
  Serious: No
  Sender: FDA-Public Use
  Company Number: USA030125943

PATIENT
  Age: 80 Year
  Sex: Female
  Weight: 70 kg

DRUGS (8)
  1. FORTEO [Suspect]
     Indication: BONE DISORDER
     Dosage: 20 UG DAY
     Dates: start: 20030108
  2. FORTEO [Suspect]
     Indication: OSTEOPOROSIS
     Dosage: 20 UG DAY
     Dates: start: 20030108
  3. ACTONEL [Concomitant]
  4. BETAPACE [Concomitant]
  5. CALCIUM [Concomitant]
  6. LIPITOR [Concomitant]
  7. PREMPRO [Concomitant]
  8. FOSAMAX [Concomitant]

REACTIONS (6)
  - ACCIDENTAL NEEDLE STICK [None]
  - ASTHENIA [None]
  - DIZZINESS [None]
  - PHARMACEUTICAL PRODUCT COMPLAINT [None]
  - VERTIGO POSITIONAL [None]
  - VIRAL INFECTION [None]
